FAERS Safety Report 8841970 (Version 1)
Quarter: 2012Q4

REPORT INFORMATION
  Report Type: Spontaneous
  Country: US (occurrence: None)
  Receive Date: 20121015
  Receipt Date: 20121015
  Transmission Date: 20130627
  Serious: Yes (Other)
  Sender: FDA-Public Use
  Company Number: None

PATIENT
  Age: 77 Year
  Sex: Female
  Weight: 72.58 kg

DRUGS (1)
  1. ESTRADIOL [Suspect]
     Dosage: 0.06 MG 1 Patch/Week
     Route: 061
     Dates: start: 201203, end: 201209

REACTIONS (3)
  - Hot flush [None]
  - Product quality issue [None]
  - Product substitution issue [None]
